FAERS Safety Report 21465555 (Version 1)
Quarter: 2022Q4

REPORT INFORMATION
  Report Type: Report from Study
  Country: FR (occurrence: FR)
  Receive Date: 20221017
  Receipt Date: 20221017
  Transmission Date: 20230112
  Serious: Yes (Hospitalization)
  Sender: FDA-Public Use
  Company Number: FR-AMGEN-FRACT2021066241

PATIENT
  Age: 73 Year
  Sex: Male
  Weight: 57 kg

DRUGS (6)
  1. PANITUMUMAB [Suspect]
     Active Substance: PANITUMUMAB
     Indication: Colorectal cancer metastatic
     Dosage: 360 MILLIGRAM, EVERY 1 CYCLE
     Route: 042
     Dates: start: 20210415
  2. FLUOROURACIL [Suspect]
     Active Substance: FLUOROURACIL
     Indication: Colorectal cancer metastatic
     Dosage: 4104 MILLIGRAM, EVERY 1 CYCLE
     Route: 042
     Dates: start: 20210415
  3. FLUOROURACIL [Suspect]
     Active Substance: FLUOROURACIL
     Dosage: 684 MILLIGRAM, EVERY 1 CYCLE
     Route: 040
     Dates: start: 20210415
  4. LEUCOVORIN CALCIUM [Suspect]
     Active Substance: LEUCOVORIN CALCIUM
     Indication: Colorectal cancer metastatic
     Dosage: 342 MILLIGRAM, EVERY 1 CYCLE
     Route: 042
     Dates: start: 20210415
  5. IRINOTECAN [Suspect]
     Active Substance: IRINOTECAN
     Indication: Colorectal cancer metastatic
     Dosage: 256.5 MILLIGRAM, EVERY 1 CYCLE
     Route: 042
     Dates: start: 20210415
  6. ELOXATIN [Suspect]
     Active Substance: OXALIPLATIN
     Indication: Colorectal cancer metastatic
     Dosage: 145.35 MILLIGRAM, EVERY 1 CYCLE
     Route: 042
     Dates: start: 20210415

REACTIONS (1)
  - Enteritis [Recovered/Resolved]

NARRATIVE: CASE EVENT DATE: 20210425
